FAERS Safety Report 7547647-1 (Version None)
Quarter: 2011Q2

REPORT INFORMATION
  Report Type: 
  Country: None (occurrence: None)
  Receive Date: 20110614
  Receipt Date: 20110606
  Transmission Date: 20111010
  Serious: Yes (Hospitalization)
  Sender: FDA-Public Use
  Company Number: FR-MERCK-1106FRA00019

PATIENT
  Age: 8 Year
  Sex: Female

DRUGS (10)
  1. SALMETEROL XINAFOATE [Suspect]
     Indication: ASTHMA
     Route: 055
  2. SINGULAIR [Suspect]
     Route: 048
  3. DESLORATADINE [Suspect]
     Indication: ASTHMA
     Route: 048
  4. OMALIZUMAB [Suspect]
     Indication: ASTHMA
     Route: 058
     Dates: start: 20110101, end: 20110401
  5. OMALIZUMAB [Suspect]
     Route: 058
     Dates: start: 20110328, end: 20110328
  6. TERBUTALINE SULFATE [Suspect]
     Indication: ASTHMA
     Route: 055
  7. OMALIZUMAB [Suspect]
     Route: 058
     Dates: start: 20110401, end: 20110401
  8. SINGULAIR [Suspect]
     Indication: ASTHMA
     Route: 048
  9. OMALIZUMAB [Suspect]
     Route: 058
     Dates: start: 20110201, end: 20110201
  10. FLUTICASONE PROPIONATE/SALMETEROL [Suspect]
     Indication: ASTHMA
     Route: 055

REACTIONS (1)
  - TACHYCARDIA [None]
